FAERS Safety Report 6467468 (Version 1)
Quarter: 2020Q3

REPORT INFORMATION
  Report Type: Report from Study
  Country: US (occurrence: US)
  Receive Date: 20071114
  Receipt Date: 20071114
  Transmission Date: 20201104
  Serious: Yes (Hospitalization)
  Sender: FDA-Public Use
  Company Number: US-JNJFOC-20060602758

PATIENT
  Age: 57 Year
  Sex: Female
  Weight: 103.42 kg

DRUGS (19)
  1. CYMBALTA [Concomitant]
     Active Substance: DULOXETINE HYDROCHLORIDE
  2. LISINOPRIL AND HYDROCHLOROTHIAZIDE [Concomitant]
     Active Substance: HYDROCHLOROTHIAZIDE\LISINOPRIL
  3. FLUCONAZOLE. [Concomitant]
     Active Substance: FLUCONAZOLE
  4. ACYCLOVIR. [Concomitant]
     Active Substance: ACYCLOVIR
  5. THALIDOMIDE [Suspect]
     Active Substance: THALIDOMIDE
     Route: 048
  6. THALIDOMIDE [Suspect]
     Active Substance: THALIDOMIDE
     Route: 048
  7. DEXAMETHASONE. [Suspect]
     Active Substance: DEXAMETHASONE
     Indication: PLASMA CELL MYELOMA
     Route: 048
  8. OXYCODONE [Concomitant]
     Active Substance: OXYCODONE
  9. DOXIL [Suspect]
     Active Substance: DOXORUBICIN HYDROCHLORIDE
     Route: 042
  10. THALIDOMIDE [Suspect]
     Active Substance: THALIDOMIDE
     Route: 048
  11. ATIVAN [Concomitant]
     Active Substance: LORAZEPAM
  12. SENOKOT [Concomitant]
     Active Substance: SENNOSIDES
  13. COUMADIN [Concomitant]
     Active Substance: WARFARIN SODIUM
  14. SOMA [Concomitant]
     Active Substance: CARISOPRODOL
  15. ZOCOR [Concomitant]
     Active Substance: SIMVASTATIN
  16. THALIDOMIDE [Suspect]
     Active Substance: THALIDOMIDE
     Indication: PLASMA CELL MYELOMA
     Route: 048
  17. TYLENOL [Concomitant]
     Active Substance: ACETAMINOPHEN
  18. DOXIL [Suspect]
     Active Substance: DOXORUBICIN HYDROCHLORIDE
     Indication: PLASMA CELL MYELOMA
     Route: 042
  19. OXYCONTIN [Concomitant]
     Active Substance: OXYCODONE HYDROCHLORIDE

REACTIONS (1)
  - Pulmonary embolism [Recovered/Resolved]

NARRATIVE: CASE EVENT DATE: 20060609
